FAERS Safety Report 5157126-7 (Version None)
Quarter: 2006Q4

REPORT INFORMATION
  Report Type: 
  Country: None (occurrence: None)
  Receive Date: 20061127
  Receipt Date: 20061114
  Transmission Date: 20070319
  Serious: Yes (Hospitalization, Disabling)
  Sender: FDA-Public Use
  Company Number: PHEH2006US14221

PATIENT
  Age: 70 Year
  Sex: Female

DRUGS (4)
  1. ZOMETA [Suspect]
     Indication: METASTASES TO BONE
     Dates: start: 20061106
  2. LOTENSIN [Concomitant]
     Indication: HYPERTENSION
     Dates: start: 19990101
  3. METHADONE HCL [Concomitant]
     Indication: HERPES ZOSTER
  4. FEMARA [Suspect]
     Indication: BREAST CANCER
     Dosage: 2.5 MG, QD
     Route: 048
     Dates: start: 20061027, end: 20061113

REACTIONS (10)
  - ABASIA [None]
  - ARTHRALGIA [None]
  - DEHYDRATION [None]
  - FEELING HOT [None]
  - GROIN PAIN [None]
  - HEADACHE [None]
  - OEDEMA PERIPHERAL [None]
  - PNEUMONIA [None]
  - PYREXIA [None]
  - VOMITING [None]
